FAERS Safety Report 14413438 (Version 1)
Quarter: 2018Q1

REPORT INFORMATION
  Report Type: Spontaneous
  Country: NL (occurrence: NL)
  Receive Date: 20180119
  Receipt Date: 20180119
  Transmission Date: 20180509
  Serious: Yes (Death)
  Sender: FDA-Public Use
  Company Number: NL-PFIZER INC-2015250693

PATIENT
  Age: 55 Year
  Sex: Male

DRUGS (17)
  1. SOMAVERT [Suspect]
     Active Substance: PEGVISOMANT
     Indication: ACROMEGALY
     Dosage: 40 MG, WEEKLY
     Route: 058
     Dates: start: 20040427, end: 20040621
  2. SOMAVERT [Suspect]
     Active Substance: PEGVISOMANT
     Dosage: 120 MG, WEEKLY
     Route: 058
     Dates: start: 20101216, end: 20111020
  3. TESTOSTERONE. [Concomitant]
     Active Substance: TESTOSTERONE
     Dosage: UNK
     Route: 003
  4. CABERGOLINE. [Concomitant]
     Active Substance: CABERGOLINE
     Dosage: 0.75 MG, 1X/DAY
     Route: 048
  5. ZOPICLONE [Concomitant]
     Active Substance: ZOPICLONE
     Dosage: UNK
     Route: 048
  6. SOMAVERT [Suspect]
     Active Substance: PEGVISOMANT
     Dosage: 80 MG, WEEKLY
     Route: 058
     Dates: start: 20041022, end: 20101215
  7. SOMAVERT [Suspect]
     Active Substance: PEGVISOMANT
     Dosage: 80 MG, WEEKLY
     Route: 058
     Dates: start: 20120106
  8. ALENDRONIC ACID [Concomitant]
     Active Substance: ALENDRONIC ACID
     Dosage: 70 MG, 1X/ WEEK
     Route: 048
  9. DALTEPARIN [Concomitant]
     Active Substance: DALTEPARIN
     Dosage: 18000 IU, 1X/DAY
     Route: 058
  10. DEXAMETHASONE. [Concomitant]
     Active Substance: DEXAMETHASONE
     Dosage: 4 MG, 1X/DAY
     Route: 048
  11. DOMPERIDONE [Concomitant]
     Active Substance: DOMPERIDONE
     Dosage: 10 MG, 3X/DAY
  12. SOMAVERT [Suspect]
     Active Substance: PEGVISOMANT
     Dosage: 60 MG, WEEKLY
     Route: 058
     Dates: start: 20040622, end: 20041021
  13. SOMAVERT [Suspect]
     Active Substance: PEGVISOMANT
     Dosage: 80 MG, 1X/WEEK
     Route: 058
     Dates: start: 20150518
  14. SOMAVERT [Suspect]
     Active Substance: PEGVISOMANT
     Dosage: 60 MG, WEEKLY
     Route: 058
     Dates: start: 20111021, end: 20120105
  15. MACROGOL [Concomitant]
     Active Substance: POLYETHYLENE GLYCOLS
     Dosage: UNK
     Route: 048
  16. PANTOPRAZOL [Concomitant]
     Active Substance: PANTOPRAZOLE SODIUM
     Dosage: 40 MG, 1X/DAY
     Route: 048
  17. PARACETAMOL [Concomitant]
     Active Substance: ACETAMINOPHEN
     Dosage: UNK
     Route: 048

REACTIONS (2)
  - Neuroendocrine carcinoma [Fatal]
  - Off label use [Not Recovered/Not Resolved]

NARRATIVE: CASE EVENT DATE: 20040427
